FAERS Safety Report 14775354 (Version 2)
Quarter: 2018Q2

REPORT INFORMATION
  Report Type: Spontaneous
  Country: DE (occurrence: DE)
  Receive Date: 20180418
  Receipt Date: 20180502
  Transmission Date: 20180711
  Serious: Yes (Other)
  Sender: FDA-Public Use
  Company Number: DE-PFIZER INC-2017414181

PATIENT
  Age: 7 Year
  Sex: Female
  Weight: 25 kg

DRUGS (8)
  1. CLOTRIMAZOL [Concomitant]
     Active Substance: CLOTRIMAZOLE
     Indication: FUNGAL SKIN INFECTION
     Dosage: UNK
     Route: 061
     Dates: start: 20170929
  2. SELEGRO CREME [Concomitant]
     Indication: FUNGAL SKIN INFECTION
     Dosage: 1 DF, 2X/DAY
     Route: 061
     Dates: start: 20170731
  3. DIFLUCAN [Suspect]
     Active Substance: FLUCONAZOLE
     Indication: FUNGAL SKIN INFECTION
     Dosage: 7.5 ML, UNK
     Route: 048
     Dates: start: 20170822
  4. BATRAFEN /00619301/ [Concomitant]
     Indication: FUNGAL SKIN INFECTION
     Dosage: UNK
     Route: 061
     Dates: start: 20170822
  5. TRIAMCINOLONE ACETONIDE. [Concomitant]
     Active Substance: TRIAMCINOLONE ACETONIDE
     Indication: FUNGAL SKIN INFECTION
     Dosage: UNK
     Route: 061
     Dates: start: 20170822
  6. UREA PUR [Concomitant]
     Indication: FUNGAL SKIN INFECTION
     Dosage: UNK
     Route: 061
     Dates: start: 20170929
  7. GLYCERIN AQUA DES. AD 2.5 CREME [Concomitant]
     Indication: FUNGAL SKIN INFECTION
     Dosage: 1 DF, 2X/DAY
     Route: 061
     Dates: start: 20170929
  8. CICLOPIROX. [Concomitant]
     Active Substance: CICLOPIROX
     Indication: FUNGAL SKIN INFECTION
     Dosage: UNK
     Route: 061
     Dates: start: 20170822

REACTIONS (1)
  - Amino acid level increased [Recovering/Resolving]

NARRATIVE: CASE EVENT DATE: 20170910
